FAERS Safety Report 9842842 (Version 1)
Quarter: 2014Q1

REPORT INFORMATION
  Report Type: Spontaneous
  Country: DK (occurrence: CA)
  Receive Date: 20140124
  Receipt Date: 20140124
  Transmission Date: 20141002
  Serious: Yes (Other)
  Sender: FDA-Public Use
  Company Number: CA-FRI-1000053064

PATIENT
  Age: 53 Year
  Sex: Female
  Weight: 86 kg

DRUGS (8)
  1. ESCITALOPRAM [Suspect]
     Dosage: 10 MG
     Route: 048
     Dates: start: 20121119, end: 20130110
  2. ZOLOFT [Suspect]
     Dosage: 50 MG
     Route: 048
     Dates: start: 20130110, end: 20130206
  3. CALCIUM [Concomitant]
     Dosage: 1000 MG
  4. D-TABS [Concomitant]
     Dosage: 10000 IU WEEKLY
  5. ESTROGEL [Concomitant]
     Dosage: 1 DF
  6. OLMETEC [Concomitant]
     Dosage: 20 MG
  7. PROMETRIUM [Concomitant]
     Dosage: 100 MG
  8. RESTORIL [Concomitant]

REACTIONS (4)
  - Electrocardiogram QT prolonged [Unknown]
  - Palpitations [Unknown]
  - Bradycardia [Unknown]
  - Arrhythmia [Unknown]
